FAERS Safety Report 10213330 (Version 1)
Quarter: 2014Q2

REPORT INFORMATION
  Report Type: Spontaneous
  Country: US (occurrence: US)
  Receive Date: 20140603
  Receipt Date: 20140603
  Transmission Date: 20141212
  Serious: Yes (Other)
  Sender: FDA-Public Use
  Company Number: US-AMGEN INC.-USASP2014040567

PATIENT
  Age: 73 Year
  Sex: Female

DRUGS (3)
  1. ENBREL [Suspect]
     Indication: RHEUMATOID ARTHRITIS
     Dosage: 50 MG, Q2WK
     Route: 065
     Dates: start: 20100301
  2. METHOTREXATE [Concomitant]
     Dosage: 2.5 MG (6 TABS), QWK
  3. HYDROXYCHLOROQUINE [Concomitant]
     Dosage: 200 MG, BID

REACTIONS (8)
  - Neoplasm malignant [Recovered/Resolved]
  - Cardiovascular insufficiency [Recovered/Resolved]
  - Staphylococcal infection [Recovered/Resolved]
  - Radiation skin injury [Recovered/Resolved]
  - Skin discolouration [Not Recovered/Not Resolved]
  - Extravasation blood [Recovered/Resolved]
  - Streptococcal infection [Recovered/Resolved]
  - Bacterial infection [Recovered/Resolved]
